FAERS Safety Report 24107680 (Version 2)
Quarter: 2024Q3

REPORT INFORMATION
  Report Type: Spontaneous
  Country: JP (occurrence: JP)
  Receive Date: 20240718
  Receipt Date: 20240807
  Transmission Date: 20241016
  Serious: Yes (Hospitalization)
  Sender: UNITED THERAPEUTICS
  Company Number: JP-UNITED THERAPEUTICS-UNT-2024-021738

PATIENT
  Age: 67 Year
  Sex: Female

DRUGS (1)
  1. TYVASO [Suspect]
     Active Substance: TREPROSTINIL
     Indication: Pulmonary arterial hypertension
     Dosage: 12 ?G, QID
     Dates: start: 20240531

REACTIONS (1)
  - Bronchitis [Unknown]

NARRATIVE: CASE EVENT DATE: 20240709
